FAERS Safety Report 26180637 (Version 1)
Quarter: 2025Q4

REPORT INFORMATION
  Report Type: Report from Study
  Country: JP (occurrence: JP)
  Receive Date: 20251219
  Receipt Date: 20251219
  Transmission Date: 20260118
  Serious: Yes (Other)
  Sender: RECORDATI
  Company Number: JP-ORPHANEU-2024009746

PATIENT
  Age: 10 Year
  Sex: Female
  Weight: 13.2 kg

DRUGS (35)
  1. CARBAGLU [Suspect]
     Active Substance: CARGLUMIC ACID
     Indication: Hyperammonaemia
     Dosage: 400 MG, TID
     Route: 048
     Dates: start: 20170216, end: 20170630
  2. CARBAGLU [Suspect]
     Active Substance: CARGLUMIC ACID
     Indication: Methylmalonic acidaemia
     Dosage: 400 MG, QID
     Dates: start: 20170701, end: 20170705
  3. CARBAGLU [Suspect]
     Active Substance: CARGLUMIC ACID
     Dosage: 600 MG IN THE MORNING, 400 MG IN THE AFTERNOON AND 600 MG IN THE EVENING
     Dates: start: 20170706, end: 20200423
  4. CARBAGLU [Suspect]
     Active Substance: CARGLUMIC ACID
     Dosage: 400 MG IN THE MORNING, 400 MG IN THE AFTERNOON AND 400 MG IN THE EVENING
     Dates: start: 20200424, end: 20200806
  5. CARBAGLU [Suspect]
     Active Substance: CARGLUMIC ACID
     Dosage: 400 MG IN THE MORNING AND 400 MG IN THE EVENING
     Dates: start: 20200807, end: 20210123
  6. CARBAGLU [Suspect]
     Active Substance: CARGLUMIC ACID
     Dosage: 400 MG IN THE MORNING, 400 MG IN THE AFTERNOON AND 400 MG IN THE EVENING
     Dates: start: 20210124, end: 20210225
  7. CARBAGLU [Suspect]
     Active Substance: CARGLUMIC ACID
     Dosage: 600 MG IN THE MORNING, 400 MG IN THE AFTERNOON AND 600 MG IN THE EVENING
     Dates: start: 20210226, end: 20210803
  8. CARBAGLU [Suspect]
     Active Substance: CARGLUMIC ACID
     Dosage: 1000 MG IN THE MRONING AND 1000 MG IN THE EVENING
     Dates: start: 20210804, end: 20210815
  9. CARBAGLU [Suspect]
     Active Substance: CARGLUMIC ACID
     Dosage: 2000 MG, BID (AFTER MEALS IN MORNING AND EVENING)
     Dates: start: 20210816, end: 20210912
  10. CARBAGLU [Suspect]
     Active Substance: CARGLUMIC ACID
     Dosage: (MORNING 800 MG, NOON 800 MG, EVENING 1000 MG) TID
     Dates: start: 20210913, end: 20210919
  11. CARBAGLU [Suspect]
     Active Substance: CARGLUMIC ACID
     Dosage: 2000 MG, BID (MORNING AND EVENING)
     Dates: start: 20210920, end: 20211004
  12. CARBAGLU [Suspect]
     Active Substance: CARGLUMIC ACID
     Dosage: MORNING 800 MG, NOON 800 MG AND EVENING 1000 MG
     Dates: start: 20211005, end: 20211017
  13. CARBAGLU [Suspect]
     Active Substance: CARGLUMIC ACID
     Dosage: MORNING 600 MG, NOON 600 MG AND EVENING 800 MG, TID
     Dates: start: 20211018, end: 20211020
  14. CARBAGLU [Suspect]
     Active Substance: CARGLUMIC ACID
     Dosage: MORNING 600 MG, NOON 400 MG, EVENING 600 MG, TID
     Dates: start: 20211021, end: 20230330
  15. CARBAGLU [Suspect]
     Active Substance: CARGLUMIC ACID
     Dosage: 600 MG, QD (600 MG IN EVENING) (IN CUP OR OTHER CONTAINER)
     Route: 048
     Dates: start: 20230331
  16. LACTULOSE [Concomitant]
     Active Substance: LACTULOSE
     Indication: Product used for unknown indication
     Dosage: 12 MILLILITER/DAY, BID (SYRUP 65 PERCENT)
     Route: 048
     Dates: end: 20230815
  17. LACTULOSE [Concomitant]
     Active Substance: LACTULOSE
     Dosage: 6 MILLILITER, QD (SYRUP 65 PERCENT)
     Route: 048
     Dates: start: 20230816
  18. FLAGYL [Concomitant]
     Active Substance: METRONIDAZOLE\METRONIDAZOLE HYDROCHLORIDE
     Indication: Product used for unknown indication
     Dosage: 0.9 TAB (TAB250 MG) WEEKLY, TIW (MONDAY, TUESDAY, WEDNESDAY)
     Route: 048
     Dates: end: 20220215
  19. FLAGYL [Concomitant]
     Active Substance: METRONIDAZOLE\METRONIDAZOLE HYDROCHLORIDE
     Dosage: 3 TAB (TAB250 MG) WEEKLY, TIW (MONDAY, TUESDAY, WEDNESDAY)
     Route: 048
     Dates: start: 20220216, end: 20220815
  20. FLAGYL [Concomitant]
     Active Substance: METRONIDAZOLE\METRONIDAZOLE HYDROCHLORIDE
     Dosage: 1 DOSAGE FORM (TABLET 250 MG), QD
     Route: 048
     Dates: start: 20220816, end: 20230215
  21. FLAGYL [Concomitant]
     Active Substance: METRONIDAZOLE\METRONIDAZOLE HYDROCHLORIDE
     Dosage: 3T/WEEK (TABLET 250 MG), TIW
     Route: 048
     Dates: start: 20230216, end: 20250215
  22. FLAGYL [Concomitant]
     Active Substance: METRONIDAZOLE\METRONIDAZOLE HYDROCHLORIDE
     Dosage: 1 DOSAGE FORM (TABLET 250 MG), QD
     Route: 048
     Dates: start: 20250216
  23. CINAL [Concomitant]
     Indication: Product used for unknown indication
     Dosage: 2.7 G/ 3 TIMES/DAY(COMBINATION GRANULES)
     Route: 048
     Dates: end: 20211014
  24. CINAL [Concomitant]
     Dosage: 4.5 G/ 3 TIMES/DAY(COMBINATION GRANULES)
     Route: 048
     Dates: start: 20211015, end: 20230815
  25. CINAL [Concomitant]
     Dosage: 1.5 GRAM, QD (COMBINATION GRANULES)
     Route: 048
     Dates: start: 20230816
  26. SODIUM BICARBONATE [Concomitant]
     Active Substance: SODIUM BICARBONATE
     Indication: Product used for unknown indication
     Dosage: 1 G/DAY, 3 TIMES (POWDER)
     Route: 048
     Dates: end: 20230330
  27. MIYA-BM [Concomitant]
     Active Substance: CLOSTRIDIUM BUTYRICUM SPORES STRAIN M-55
     Indication: Product used for unknown indication
     Dosage: 2 GRAM/DAY, TID (FINE GRANULES)
     Route: 048
     Dates: end: 20211104
  28. JUVELA [Concomitant]
     Active Substance: .ALPHA.-TOCOPHEROL\RETINOL
     Indication: Product used for unknown indication
     Dosage: 100 MG (2 TABLETS OF 50 MG)/DAILY, BID (TABLET 50 MG)
     Route: 048
     Dates: start: 20210903, end: 20230815
  29. JUVELA [Concomitant]
     Active Substance: .ALPHA.-TOCOPHEROL\RETINOL
     Dosage: 50 MILLIGRAM (1 TABLET OF 50 MG), BID
     Route: 048
     Dates: start: 20230816
  30. MOVICOL [Concomitant]
     Active Substance: POLYETHYLENE GLYCOL 3350\POTASSIUM CHLORIDE\SODIUM BICARBONATE\SODIUM CHLORIDE
     Indication: Product used for unknown indication
     Dosage: 1 PACKET/ DAY (COMBINATION ORAL AGENT LD)
     Route: 048
     Dates: end: 20230330
  31. LACTULOSE [Concomitant]
     Active Substance: LACTULOSE
     Indication: Product used for unknown indication
     Dosage: 2 MILLILITER, Q12H
     Route: 048
  32. BUPHENYL [Concomitant]
     Active Substance: SODIUM PHENYLBUTYRATE
     Indication: Product used for unknown indication
     Dosage: 1500 MG
     Route: 048
  33. PRANLUKAST [Concomitant]
     Active Substance: PRANLUKAST
     Indication: Product used for unknown indication
     Dosage: 3000 MG
     Route: 048
  34. LEVOCARNITINE HYDROCHLORIDE [Concomitant]
     Active Substance: LEVOCARNITINE HYDROCHLORIDE
     Indication: Product used for unknown indication
  35. VEEN D [Concomitant]
     Active Substance: CALCIUM CHLORIDE\DEXTROSE\POTASSIUM CHLORIDE\SODIUM ACETATE\SODIUM CHLORIDE
     Indication: Product used for unknown indication
     Dosage: UNK
     Route: 041
     Dates: start: 20210701, end: 20211231

REACTIONS (1)
  - Metabolic acidosis [Recovered/Resolved]

NARRATIVE: CASE EVENT DATE: 20241203
